FAERS Safety Report 5268231-9 (Version None)
Quarter: 2007Q1

REPORT INFORMATION
  Report Type: 
  Country: None (occurrence: None)
  Receive Date: 20070313
  Receipt Date: 20070302
  Transmission Date: 20070707
  Serious: Yes (Disabling, Other)
  Sender: FDA-Public Use
  Company Number: 07H-163-0312199-00

PATIENT
  Age: 47 Year
  Sex: Male

DRUGS (1)
  1. MORPHINE SULFATE [Suspect]
     Indication: ANALGESIC THERAPY
     Dosage: 32 MG, 1 IN D, INTRATHECAL
     Route: 037

REACTIONS (6)
  - DEVICE RELATED INFECTION [None]
  - DIPLEGIA [None]
  - INFUSION SITE ABSCESS [None]
  - INFUSION SITE MASS [None]
  - SPINAL CORD COMPRESSION [None]
  - STREPTOCOCCAL INFECTION [None]
